FAERS Safety Report 14943939 (Version 2)
Quarter: 2018Q2

REPORT INFORMATION
  Report Type: Report from Study
  Country: BR (occurrence: BR)
  Receive Date: 20180528
  Receipt Date: 20180625
  Transmission Date: 20180711
  Serious: Yes (Other)
  Sender: FDA-Public Use
  Company Number: BR-TAKEDA-2018TUS003011

PATIENT
  Age: 23 Year
  Sex: Male

DRUGS (1)
  1. VEDOLIZUMAB [Suspect]
     Active Substance: VEDOLIZUMAB
     Indication: CROHN^S DISEASE
     Dosage: 300 MG, UNK
     Route: 042
     Dates: start: 20180105

REACTIONS (6)
  - Procedural complication [Unknown]
  - Skin exfoliation [Unknown]
  - Crohn^s disease [Unknown]
  - Blood pressure decreased [Recovered/Resolved]
  - Cyst [Unknown]
  - Off label use [Unknown]

NARRATIVE: CASE EVENT DATE: 201801
